FAERS Safety Report 4427571-3 (Version None)
Quarter: 2004Q3

REPORT INFORMATION
  Report Type: 
  Country: None (occurrence: None)
  Receive Date: 20040812
  Receipt Date: 20040802
  Transmission Date: 20050211
  Serious: Yes (Other)
  Sender: FDA-Public Use
  Company Number: 2004-08-0087

PATIENT
  Age: 32 Year
  Sex: Male
  Weight: 80 kg

DRUGS (1)
  1. CLARITIN [Suspect]
     Indication: SEASONAL ALLERGY
     Dosage: 1 TAB QD ORAL
     Route: 048
     Dates: start: 20040625, end: 20040627

REACTIONS (3)
  - EYELID PTOSIS [None]
  - MYASTHENIA GRAVIS [None]
  - VISUAL DISTURBANCE [None]
